FAERS Safety Report 6925079-4 (Version None)
Quarter: 2010Q3

REPORT INFORMATION
  Report Type: 
  Country: None (occurrence: None)
  Receive Date: 20100816
  Receipt Date: 20100803
  Transmission Date: 20110219
  Serious: No
  Sender: FDA-Public Use
  Company Number: US-B.I. PHARMACEUTICALS,INC./RIDGEFIELD-2010-BP-08816BP

PATIENT
  Age: 78 Year
  Sex: Female

DRUGS (6)
  1. MICARDIS [Suspect]
     Indication: HYPERTENSION
     Dosage: 80 MG
     Route: 048
     Dates: start: 20100101
  2. CARDIZEM [Concomitant]
     Indication: HYPERTENSION
  3. LASIX [Concomitant]
     Indication: HYPERTENSION
     Dosage: 40 MG
     Route: 048
  4. SINGULAIR [Concomitant]
     Indication: ASTHMA
  5. XYZAL [Concomitant]
     Indication: HYPERSENSITIVITY
  6. XOPENEX [Concomitant]
     Indication: ASTHMA

REACTIONS (5)
  - ASTHMA [None]
  - CHEST DISCOMFORT [None]
  - DRUG INEFFECTIVE [None]
  - HYPERHIDROSIS [None]
  - RASH PRURITIC [None]
